FAERS Safety Report 8395548-1 (Version None)
Quarter: 2012Q2

REPORT INFORMATION
  Report Type: 
  Country: None (occurrence: None)
  Receive Date: 20120530
  Receipt Date: 20110720
  Transmission Date: 20120825
  Serious: No
  Sender: FDA-Public Use
  Company Number: US-GLAXOSMITHKLINE-A0937475A

PATIENT
  Age: 49 Year
  Sex: Male

DRUGS (2)
  1. NASONEX [Concomitant]
  2. VENTOLIN [Suspect]
     Indication: ASTHMA
     Dosage: 2PUFF AS REQUIRED
     Route: 055

REACTIONS (6)
  - INCREASED UPPER AIRWAY SECRETION [None]
  - DYSPNOEA [None]
  - WHEEZING [None]
  - COUGH [None]
  - INHALATION THERAPY [None]
  - SNEEZING [None]
